FAERS Safety Report 6842354-2 (Version None)
Quarter: 2010Q3

REPORT INFORMATION
  Report Type: 
  Country: None (occurrence: None)
  Receive Date: 20100709
  Receipt Date: 20100701
  Transmission Date: 20110219
  Serious: Yes (Hospitalization)
  Sender: FDA-Public Use
  Company Number: 014795

PATIENT
  Sex: Male

DRUGS (2)
  1. KEPPRA [Suspect]
     Indication: EPILEPSY
     Dates: start: 20100120, end: 20100504
  2. TEGRETOL [Suspect]
     Indication: EPILEPSY
     Dates: start: 20100101, end: 20100504

REACTIONS (1)
  - FACIAL PARESIS [None]
